FAERS Safety Report 16614664 (Version 1)
Quarter: 2019Q3

REPORT INFORMATION
  Report Type: Spontaneous
  Country: AU (occurrence: AU)
  Receive Date: 20190723
  Receipt Date: 20190723
  Transmission Date: 20191004
  Serious: Yes (Hospitalization)
  Sender: FDA-Public Use
  Company Number: AU-SA-2019SA197715

PATIENT
  Age: 80 Year
  Sex: Male

DRUGS (2)
  1. WARFARIN [Concomitant]
     Active Substance: WARFARIN
     Indication: ATRIAL FIBRILLATION
     Dosage: UNK
  2. BCG FOR IMMUNOTHERAPY [Suspect]
     Active Substance: BACILLUS CALMETTE-GUERIN ANTIGEN, UNSPECIFIED SUBSTRAIN
     Indication: BLADDER CANCER
     Dosage: UNK
     Route: 065

REACTIONS (8)
  - Swelling [Unknown]
  - Vascular pseudoaneurysm [Unknown]
  - Mycobacterium tuberculosis complex test positive [Unknown]
  - Arterial rupture [Unknown]
  - Thrombosis [Unknown]
  - Haematoma muscle [Unknown]
  - Arteriosclerosis [Unknown]
  - Groin pain [Unknown]
